FAERS Safety Report 24865420 (Version 2)
Quarter: 2025Q3

REPORT INFORMATION
  Report Type: Spontaneous
  Country: EU (occurrence: EU)
  Receive Date: 20250121
  Receipt Date: 20250822
  Transmission Date: 20251021
  Serious: Yes (Life-Threatening, Other)
  Sender: SAMSUNG BIOEPIS
  Company Number: None

PATIENT
  Age: 17 Year
  Sex: Female
  Weight: 50 kg

DRUGS (1)
  1. INFLIXIMAB [Suspect]
     Active Substance: INFLIXIMAB
     Indication: Crohn^s disease
     Route: 042
     Dates: start: 20240205, end: 20240916

REACTIONS (7)
  - Urticaria [Recovered/Resolved]
  - Laryngeal oedema [Recovered/Resolved]
  - Choking [Recovered/Resolved]
  - Dysphonia [Recovered/Resolved]
  - Hypotension [Recovered/Resolved]
  - Asthenia [Recovered/Resolved]
  - Infusion related reaction [Recovered/Resolved]

NARRATIVE: CASE EVENT DATE: 20240916
